FAERS Safety Report 4367629-0 (Version None)
Quarter: 2004Q2

REPORT INFORMATION
  Report Type: 
  Country: None (occurrence: None)
  Receive Date: 20040601
  Receipt Date: 20030130
  Transmission Date: 20050107
  Serious: Yes (Death, Hospitalization, Disabling)
  Sender: FDA-Public Use
  Company Number: US-MERCK-0302USA00111

PATIENT
  Age: 63 Year
  Sex: Female
  Weight: 50 kg

DRUGS (2)
  1. VIOXX [Suspect]
     Indication: MIGRAINE
     Route: 048
     Dates: start: 20001101, end: 20001101
  2. VIOXX [Suspect]
     Route: 048
     Dates: start: 20001103, end: 20001103

REACTIONS (4)
  - CEREBRAL INFARCTION [None]
  - COMA [None]
  - GASTROOESOPHAGEAL REFLUX DISEASE [None]
  - THYROID DISORDER [None]
